FAERS Safety Report 9120489 (Version 1)
Quarter: 2013Q1

REPORT INFORMATION
  Report Type: Spontaneous
  Country: CH (occurrence: CH)
  Receive Date: 20130226
  Receipt Date: 20130226
  Transmission Date: 20140127
  Serious: Yes (Hospitalization)
  Sender: FDA-Public Use
  Company Number: CH-PFIZER INC-2013066159

PATIENT
  Age: 83 Year
  Sex: Female

DRUGS (9)
  1. EFEXOR ER [Suspect]
     Indication: DEPRESSION
     Dosage: 150 MG, 1X/DAY
     Route: 048
     Dates: end: 20130124
  2. EFEXOR ER [Suspect]
     Dosage: 75 MG, 1X/DAY
     Route: 048
     Dates: start: 20130125, end: 20130131
  3. EFEXOR ER [Suspect]
     Dosage: 37.5 MG, 1X/DAY
     Route: 048
     Dates: start: 20130201
  4. ZYPREXA [Concomitant]
     Indication: ABNORMAL BEHAVIOUR
     Dosage: 7.5 MG PER DAY (2.5 MG IN THE MORNING, 5 MG IN THE EVENING)
     Route: 048
  5. ASPIRIN ^BAYER^ [Concomitant]
     Indication: PROPHYLAXIS
     Dosage: 100 MG, 1X/DAY
     Route: 048
  6. METO-ZEROK [Concomitant]
     Indication: MYOCARDIAL ISCHAEMIA
     Dosage: 25 MG, 1X/DAY
     Route: 048
  7. BACTRIM [Concomitant]
     Indication: URINARY TRACT INFECTION
     Dosage: 800 MG/160 MG, 2X/DAY
     Route: 048
  8. OMEPRAZOLE [Concomitant]
     Indication: PROPHYLAXIS
     Dosage: 20 MG, 1X/DAY
     Route: 048
  9. TRAMADOL [Concomitant]
     Indication: PAIN
     Dosage: UNK
     Route: 048

REACTIONS (5)
  - Hyponatraemia [Recovered/Resolved]
  - Delirium [Recovered/Resolved]
  - Fall [Recovered/Resolved]
  - Fracture [Recovered/Resolved]
  - Anaemia [Unknown]
